FAERS Safety Report 6361400-6 (Version None)
Quarter: 2009Q3

REPORT INFORMATION
  Report Type: 
  Country: None (occurrence: None)
  Receive Date: 20090916
  Receipt Date: 20090916
  Transmission Date: 20100115
  Serious: Yes (Other)
  Sender: FDA-Public Use
  Company Number: None

PATIENT
  Age: 56 Year
  Sex: Female
  Weight: 65.7716 kg

DRUGS (9)
  1. VANCOMYCIN HCL [Suspect]
     Indication: PSEUDOMYXOMA PERITONEI
     Dosage: 1500 Q/2 HR IV
     Route: 042
     Dates: start: 20090819, end: 20090831
  2. MIRALAX [Concomitant]
  3. FIBERLAX [Concomitant]
  4. SENOKOT [Concomitant]
  5. VICODIN [Concomitant]
  6. MULTI-VIT [Concomitant]
  7. VITAMIN B COMPLEX CAP [Concomitant]
  8. SALINE FLASH [Concomitant]
  9. HEPARIN [Concomitant]

REACTIONS (2)
  - BLISTER [None]
  - RASH ERYTHEMATOUS [None]
